FAERS Safety Report 14947941 (Version 3)
Quarter: 2020Q3

REPORT INFORMATION
  Report Type: Report from Study
  Country: CL (occurrence: CL)
  Receive Date: 20180529
  Receipt Date: 20200827
  Transmission Date: 20201102
  Serious: Yes (Other)
  Sender: FDA-Public Use
  Company Number: PHHY2017CL126047

PATIENT
  Age: 36 Year
  Sex: Female
  Weight: 58 kg

DRUGS (6)
  1. VITAMIN D3 [Concomitant]
     Active Substance: CHOLECALCIFEROL
     Indication: PROPHYLAXIS
     Dosage: 4000 IU, UNK
     Route: 065
     Dates: start: 20141124
  2. LEXAPRO [Concomitant]
     Active Substance: ESCITALOPRAM OXALATE
     Indication: ANXIETY DISORDER
     Dosage: 10 MG, UNK
     Route: 065
  3. HERBAL NOS [Concomitant]
     Active Substance: HERBALS
     Indication: PROPHYLAXIS
     Dosage: UNK
     Route: 065
     Dates: start: 20150402, end: 20151021
  4. GILENYA [Suspect]
     Active Substance: FINGOLIMOD HYDROCHLORIDE
     Indication: MULTIPLE SCLEROSIS
     Dosage: 0.5 MG, QD
     Route: 048
     Dates: start: 20141107, end: 20170822
  5. LANSOPRAZOLE. [Concomitant]
     Active Substance: LANSOPRAZOLE
     Indication: GASTROOESOPHAGEAL REFLUX DISEASE
     Dosage: 10 MG, UNK
     Route: 065
     Dates: start: 20150117
  6. DISVEN [Concomitant]
     Indication: ENDOMETRIOSIS
     Dosage: 1 DF, UNK
     Route: 065
     Dates: start: 201305

REACTIONS (7)
  - Detachment of macular retinal pigment epithelium [Not Recovered/Not Resolved]
  - Macular pigmentation [Not Recovered/Not Resolved]
  - Chorioretinopathy [Recovered/Resolved]
  - Hydronephrosis [Not Recovered/Not Resolved]
  - Chorioretinopathy [Recovered/Resolved]
  - Vision blurred [Recovered/Resolved]
  - Blood creatine increased [Not Recovered/Not Resolved]

NARRATIVE: CASE EVENT DATE: 201708
